FAERS Safety Report 24097060 (Version 1)
Quarter: 2024Q3

REPORT INFORMATION
  Report Type: Spontaneous
  Country: US (occurrence: US)
  Receive Date: 20240716
  Receipt Date: 20240716
  Transmission Date: 20241017
  Serious: No
  Sender: PAREXEL
  Company Number: US-EVOFEM BIOSCIENCES, INC.-2024-EVO-US000013

PATIENT

DRUGS (1)
  1. PHEXXI [Suspect]
     Active Substance: CITRIC ACID MONOHYDRATE\LACTIC ACID, L-\POTASSIUM BITARTRATE
     Indication: Product used for unknown indication
     Dosage: UNKNOWN DOSES USED

REACTIONS (1)
  - Expired product administered [Unknown]
